FAERS Safety Report 4386118-0 (Version None)
Quarter: 2004Q2

REPORT INFORMATION
  Report Type: 
  Country: None (occurrence: None)
  Receive Date: 20040625
  Receipt Date: 20040625
  Transmission Date: 20050107
  Serious: No
  Sender: FDA-Public Use
  Company Number: None

PATIENT
  Age: 77 Year
  Sex: Male

DRUGS (2)
  1. MORPHINE [Suspect]
     Indication: JOINT DISLOCATION
     Dosage: 8 MG
     Dates: start: 20031012
  2. LORAZEPAM [Suspect]
     Indication: SEDATION
     Dosage: 1 MG
     Dates: start: 20031012

REACTIONS (7)
  - APNOEA [None]
  - BLOOD PRESSURE SYSTOLIC DECREASED [None]
  - CARDIO-RESPIRATORY ARREST [None]
  - DEPRESSED LEVEL OF CONSCIOUSNESS [None]
  - HYPERHIDROSIS [None]
  - LETHARGY [None]
  - OXYGEN SATURATION DECREASED [None]
